FAERS Safety Report 10678165 (Version 2)
Quarter: 2015Q1

REPORT INFORMATION
  Report Type: Spontaneous
  Country: JP (occurrence: JP)
  Receive Date: 20141229
  Receipt Date: 20150116
  Transmission Date: 20150720
  Serious: Yes (Other)
  Sender: FDA-Public Use
  Company Number: JP-ASTRAZENECA-2014SE99193

PATIENT
  Age: 78 Year
  Sex: Female

DRUGS (2)
  1. MEROPEN [Suspect]
     Active Substance: MEROPENEM
     Indication: PYREXIA
     Route: 042
  2. ALLOPURINOL. [Suspect]
     Active Substance: ALLOPURINOL
     Route: 048

REACTIONS (5)
  - Human herpes virus 6 serology positive [Unknown]
  - Fulminant type 1 diabetes mellitus [Unknown]
  - Erythema [Unknown]
  - Drug reaction with eosinophilia and systemic symptoms [Unknown]
  - Drug eruption [Unknown]
